FAERS Safety Report 7534489-6 (Version None)
Quarter: 2011Q2

REPORT INFORMATION
  Report Type: 
  Country: None (occurrence: None)
  Receive Date: 20110609
  Receipt Date: 20110607
  Transmission Date: 20111010
  Serious: Yes (Hospitalization)
  Sender: FDA-Public Use
  Company Number: JP-ABBOTT-10P-087-0690061-00

PATIENT
  Sex: Male
  Weight: 62.1 kg

DRUGS (24)
  1. PREDNISOLONE [Suspect]
  2. CELECOXIB [Concomitant]
     Indication: RHEUMATOID ARTHRITIS
  3. FUROSEMIDE [Concomitant]
     Indication: PRODUCT USED FOR UNKNOWN INDICATION
  4. SULFAMETHOXAZOLE AND TRIMETHOPRIM [Concomitant]
     Indication: ANTIFUNGAL PROPHYLAXIS
     Route: 048
     Dates: start: 20101222
  5. CANDESARTAN CILEXETIL [Concomitant]
     Indication: PRODUCT USED FOR UNKNOWN INDICATION
  6. LANSOPRAZOLE [Concomitant]
     Indication: GASTRITIS PROPHYLAXIS
  7. FERROUS CITRATE [Concomitant]
     Indication: PRODUCT USED FOR UNKNOWN INDICATION
  8. MOXIFLOXACIN HYDROCHLORIDE [Concomitant]
     Indication: PRODUCT USED FOR UNKNOWN INDICATION
  9. TORSEMIDE [Concomitant]
     Indication: PRODUCT USED FOR UNKNOWN INDICATION
     Dates: start: 20100925
  10. RABEPRAZOLE SODIUM [Concomitant]
     Indication: PRODUCT USED FOR UNKNOWN INDICATION
     Dates: start: 20100925
  11. HUMIRA [Suspect]
     Indication: RHEUMATOID ARTHRITIS
     Route: 058
     Dates: start: 20090714, end: 20101126
  12. PREDNISOLONE [Suspect]
     Dates: start: 20100219
  13. CARVEDILOL [Concomitant]
     Indication: PRODUCT USED FOR UNKNOWN INDICATION
  14. TELMISARTAN [Concomitant]
     Indication: PRODUCT USED FOR UNKNOWN INDICATION
     Dates: start: 20100925
  15. WARFARIN POTASSIUM [Concomitant]
     Indication: THROMBOSIS PROPHYLAXIS
  16. TACROLIMUS [Concomitant]
     Indication: RHEUMATOID ARTHRITIS
     Dates: start: 20090116, end: 20090731
  17. SULFAMETHOXAZOLE AND TRIMETHOPRIM [Concomitant]
     Dates: start: 20080421, end: 20100924
  18. WARFARIN POTASSIUM [Concomitant]
     Indication: HEART VALVE REPLACEMENT
  19. MAGNESIUM OXIDE [Concomitant]
     Indication: PRODUCT USED FOR UNKNOWN INDICATION
  20. BROTIZOLAM [Concomitant]
     Indication: PRODUCT USED FOR UNKNOWN INDICATION
  21. PREDNISOLONE [Suspect]
     Indication: RHEUMATOID ARTHRITIS
     Route: 048
     Dates: start: 20091127
  22. POTASSIUM L-ASPARTATE [Concomitant]
     Indication: PRODUCT USED FOR UNKNOWN INDICATION
  23. PREDNISOLONE [Suspect]
  24. PREDNISOLONE [Suspect]

REACTIONS (9)
  - PNEUMOCYSTIS JIROVECI PNEUMONIA [None]
  - RASH [None]
  - MALAISE [None]
  - RESPIRATORY TRACT INFLAMMATION [None]
  - FALL [None]
  - HAEMORRHAGE SUBCUTANEOUS [None]
  - PRURITUS [None]
  - SKIN EXFOLIATION [None]
  - DRUG INEFFECTIVE [None]
